FAERS Safety Report 8371973 (Version 2)
Quarter: 2013Q1

REPORT INFORMATION
  Report Type: Report from Study
  Country: PR (occurrence: PR)
  Receive Date: 20120129
  Receipt Date: 20130129
  Transmission Date: 20140127
  Serious: Yes (Hospitalization, Other)
  Sender: FDA-Public Use
  Company Number: PR-ABBOTT-11P-131-0884783-00

PATIENT
  Age: 60 None
  Sex: Male
  Weight: 90.8 kg

DRUGS (6)
  1. HUMIRA 40 MG/ 0.8 ML PRE-FILLED SYRINGE [Suspect]
     Indication: PRODUCT USED FOR UNKNOWN INDICATION
     Route: 058
     Dates: end: 201112
  2. EXFORGE [Concomitant]
     Indication: HYPERTENSION
     Dosage: 160 MG DAILY
     Route: 048
  3. ZIAC [Concomitant]
     Indication: HYPERTENSION
     Dosage: 10/6.25MG DAILY
     Route: 048
  4. AMBIEN [Concomitant]
     Indication: SLEEP DISORDER THERAPY
     Dosage: 10 MG AT BEDTIME AS NEEDED
     Route: 048
  5. PROZAC [Concomitant]
     Indication: ANXIETY
     Dosage: 10 MG DAILY AS NEEDED
     Route: 048
  6. RELAFEN [Concomitant]
     Indication: PAIN
     Dosage: 750 MG DAILY AS NEEDED
     Route: 048

REACTIONS (4)
  - Cellulitis [Recovered/Resolved]
  - Cellulitis [Recovered/Resolved]
  - Cellulitis staphylococcal [Unknown]
  - Immunodeficiency [Unknown]
